FAERS Safety Report 12589700 (Version 2)
Quarter: 2016Q3

REPORT INFORMATION
  Report Type: Spontaneous
  Country: US (occurrence: US)
  Receive Date: 20160725
  Receipt Date: 20160811
  Transmission Date: 20161109
  Serious: No
  Sender: FDA-Public Use
  Company Number: US-PFIZER INC-2016354784

PATIENT
  Age: 58 Year
  Sex: Female
  Weight: 102.6 kg

DRUGS (7)
  1. IVABRADINE [Concomitant]
     Active Substance: IVABRADINE
     Indication: ARRHYTHMIA
     Dosage: 60 MG, 2X/DAY (60MG PILL IN THE MORNING AND 60MG AT NIGHT BY MOUTH)
     Route: 048
     Dates: start: 2015
  2. ZYRTEC [Concomitant]
     Active Substance: CETIRIZINE HYDROCHLORIDE
     Indication: HYPERSENSITIVITY
     Dosage: 10 MG, DAILY (10MG PILL EVERY NIGHT BY MOUTH)
     Route: 048
  3. LEXAPRO [Concomitant]
     Active Substance: ESCITALOPRAM OXALATE
     Indication: ANXIETY
     Dosage: 20 MG, 1X/DAY (20MG PILL AT NIGHT BY MOUTH)
     Route: 048
  4. NEXIUM 24HR [Concomitant]
     Active Substance: ESOMEPRAZOLE MAGNESIUM
     Indication: DYSPEPSIA
     Dosage: 44 MG, 1X/DAY (44MG CAPSULE ONCE AT NIGHT BY MOUTH)
     Route: 048
  5. VITAMIN D [Concomitant]
     Active Substance: CHOLECALCIFEROL
     Indication: VITAMIN D DECREASED
     Dosage: 10000 IU, 1X/DAY
     Route: 048
  6. VERAPAMIL HCL [Suspect]
     Active Substance: VERAPAMIL HYDROCHLORIDE
     Indication: ARRHYTHMIA
     Dosage: 220 MG, 1X/DAY (220MG TABLET ONCE AT NIGHT BY MOUTH)
     Route: 048
     Dates: start: 2015
  7. LEVOTHYROXINE. [Concomitant]
     Active Substance: LEVOTHYROXINE
     Indication: HYPOTHYROIDISM
     Dosage: 0.88 UG, 1X/DAY (0.88MCG ONCE A DAY BY MOUTH)
     Route: 048

REACTIONS (8)
  - Feeling abnormal [Recovered/Resolved]
  - Headache [Recovered/Resolved]
  - Malaise [Unknown]
  - Strabismus [Recovered/Resolved]
  - Feeling hot [Recovered/Resolved]
  - Speech disorder [Recovered/Resolved]
  - Dizziness [Recovered/Resolved]
  - Heart rate increased [Unknown]

NARRATIVE: CASE EVENT DATE: 20160719
